FAERS Safety Report 26126111 (Version 1)
Quarter: 2025Q4

REPORT INFORMATION
  Report Type: Spontaneous
  Country: US (occurrence: US)
  Receive Date: 20251205
  Receipt Date: 20251205
  Transmission Date: 20260117
  Serious: Yes (Life-Threatening, Other)
  Sender: BRACCO
  Company Number: US-BRACCO-2025US08471

PATIENT
  Sex: Male

DRUGS (4)
  1. LUMASON [Suspect]
     Active Substance: SULFUR HEXAFLUORIDE
     Indication: Echocardiogram
     Dosage: 1 ML, SINGLE
     Dates: start: 20251128, end: 20251128
  2. LUMASON [Suspect]
     Active Substance: SULFUR HEXAFLUORIDE
  3. LUMASON [Suspect]
     Active Substance: SULFUR HEXAFLUORIDE
  4. SALINE [Concomitant]
     Active Substance: SODIUM CHLORIDE
     Dosage: 2 ML, SINGLE
     Dates: start: 20251128, end: 20251128

REACTIONS (2)
  - Hyporesponsive to stimuli [Unknown]
  - Swollen tongue [Unknown]

NARRATIVE: CASE EVENT DATE: 20251128
